FAERS Safety Report 20154508 (Version 1)
Quarter: 2021Q4

REPORT INFORMATION
  Report Type: Spontaneous
  Country: US (occurrence: US)
  Receive Date: 20211207
  Receipt Date: 20211207
  Transmission Date: 20220303
  Serious: Yes (Other)
  Sender: FDA-Public Use
  Company Number: US-UCBSA-2021056324

PATIENT
  Age: 9 Month
  Sex: Female

DRUGS (6)
  1. KEPPRA [Suspect]
     Active Substance: LEVETIRACETAM
     Indication: Seizure
     Dosage: 60 MILLIGRAM/KILOGRAM
  2. DIAZEPAM [Suspect]
     Active Substance: DIAZEPAM
     Indication: Seizure
     Dosage: UNK
     Route: 054
  3. LORAZEPAM [Suspect]
     Active Substance: LORAZEPAM
     Indication: Seizure
     Dosage: .1 MILLIGRAM/KILOGRAM
     Route: 042
  4. FOSPHENYTOIN [Suspect]
     Active Substance: FOSPHENYTOIN
     Indication: Seizure
     Dosage: 20 MILLIGRAM/KILOGRAM
  5. KETAMINE [Concomitant]
     Active Substance: KETAMINE
     Indication: Seizure
     Dosage: 1 MILLIGRAM/KILOGRAM
     Route: 042
  6. PROPOFOL [Concomitant]
     Active Substance: PROPOFOL
     Indication: Sedation
     Dosage: UNK

REACTIONS (4)
  - Urinary tract infection [Unknown]
  - White blood cell disorder [Unknown]
  - SARS-CoV-2 test negative [Unknown]
  - Multiple-drug resistance [Unknown]
